FAERS Safety Report 5769109-4 (Version None)
Quarter: 2008Q2

REPORT INFORMATION
  Report Type: 
  Country: None (occurrence: None)
  Receive Date: 20080612
  Receipt Date: 20080317
  Transmission Date: 20081010
  Serious: No
  Sender: FDA-Public Use
  Company Number: US-ABBOTT-08P-163-0443675-00

PATIENT
  Sex: Female
  Weight: 124.85 kg

DRUGS (10)
  1. HUMIRA [Suspect]
     Indication: SCLERODERMA
     Route: 058
     Dates: start: 20070301
  2. HUMIRA [Suspect]
     Indication: FIBROMYALGIA
  3. METHOTREXATE [Concomitant]
     Indication: FIBROMYALGIA
     Route: 048
  4. METHOTREXATE [Concomitant]
     Indication: SCLERODERMA
  5. DOXEPIN HCL [Concomitant]
     Indication: DEPRESSION
     Route: 048
  6. CELECOXIB [Concomitant]
     Indication: OSTEOARTHRITIS
     Route: 048
  7. CELECOXIB [Concomitant]
     Indication: FIBROMYALGIA
  8. CELECOXIB [Concomitant]
     Indication: SCLERODERMA
  9. CLONAZEPAM [Concomitant]
     Indication: INSOMNIA
     Route: 048
  10. OMEPRAZOLE [Concomitant]
     Indication: OESOPHAGEAL DISORDER
     Route: 048

REACTIONS (2)
  - INJECTION SITE PAIN [None]
  - WOUND INFECTION STAPHYLOCOCCAL [None]
